FAERS Safety Report 17770158 (Version 3)
Quarter: 2020Q2

REPORT INFORMATION
  Report Type: Spontaneous
  Country: US (occurrence: US)
  Receive Date: 20200512
  Receipt Date: 20200611
  Transmission Date: 20200714
  Serious: Yes (Other)
  Sender: FDA-Public Use
  Company Number: US-PFIZER INC-2020185959

PATIENT
  Age: 69 Year
  Sex: Male

DRUGS (22)
  1. MEGESTROL [Concomitant]
     Active Substance: MEGESTROL
     Dosage: 40 MG, 3X/DAY (TID)
  2. SERTRALINE [Concomitant]
     Active Substance: SERTRALINE HYDROCHLORIDE
     Dosage: 50 MG, DAILY
  3. TACROLIMUS. [Concomitant]
     Active Substance: TACROLIMUS
     Dosage: 2 MG, 2X/DAY
  4. TAMSULOSIN [Concomitant]
     Active Substance: TAMSULOSIN
     Dosage: 0.4 MG, DAILY (NIGHTLY)
  5. ERTAPENEM. [Concomitant]
     Active Substance: ERTAPENEM SODIUM
     Indication: PATHOGEN RESISTANCE
     Dosage: UNK
  6. ALLOPURINOL. [Concomitant]
     Active Substance: ALLOPURINOL
     Dosage: 100 MG, DAILY
  7. CARBIDOPA/LEVODOPA [Concomitant]
     Active Substance: CARBIDOPA\LEVODOPA
     Dosage: 25 MG, 2X/DAY
  8. CARVEDILOL. [Concomitant]
     Active Substance: CARVEDILOL
     Dosage: 6.25 MG, 2X/DAY
  9. FUROSEMIDE. [Concomitant]
     Active Substance: FUROSEMIDE
     Dosage: 80 MG, 2X/DAY
  10. MAGNESIUM OXIDE. [Concomitant]
     Active Substance: MAGNESIUM OXIDE
     Dosage: 400 MG, DAILY
  11. RASAGILINE. [Interacting]
     Active Substance: RASAGILINE
     Indication: PARKINSON^S DISEASE
     Dosage: 1 MG, DAILY
  12. CARBIDOPA/LEVODOPA [Concomitant]
     Active Substance: CARBIDOPA\LEVODOPA
     Dosage: 100 MG, 2X/DAY
  13. VANCOMYCIN [Concomitant]
     Active Substance: VANCOMYCIN
     Indication: PYELONEPHRITIS
     Dosage: UNK
  14. INSULIN GLARGINE [Concomitant]
     Active Substance: INSULIN GLARGINE
     Dosage: 10 UNITS NIGHTLY
  15. CEFEPIME [Concomitant]
     Active Substance: CEFEPIME HYDROCHLORIDE
     Indication: PYELONEPHRITIS
     Dosage: UNK
  16. CEFEPIME [Concomitant]
     Active Substance: CEFEPIME HYDROCHLORIDE
     Indication: ACUTE KIDNEY INJURY
  17. ERTAPENEM. [Concomitant]
     Active Substance: ERTAPENEM SODIUM
     Indication: KLEBSIELLA INFECTION
  18. CIPROFLOXACIN. [Suspect]
     Active Substance: CIPROFLOXACIN
     Indication: PROPHYLAXIS URINARY TRACT INFECTION
     Dosage: 500 MG THREE TIMES WEEKLY ON MONDAYS, WEDNESDAYS, AND FRIDAYS
  19. PANTOPRAZOLE [Concomitant]
     Active Substance: PANTOPRAZOLE
     Dosage: 40 MG, DAILY
  20. VANCOMYCIN [Concomitant]
     Active Substance: VANCOMYCIN
     Indication: ACUTE KIDNEY INJURY
  21. PREDNISONE. [Concomitant]
     Active Substance: PREDNISONE
     Dosage: 5 MG, DAILY
  22. SPIRONOLACTONE. [Concomitant]
     Active Substance: SPIRONOLACTONE
     Dosage: 25 MG, DAILY

REACTIONS (6)
  - Cogwheel rigidity [Recovered/Resolved]
  - Off label use [Unknown]
  - Drug interaction [Recovered/Resolved]
  - Tremor [Recovered/Resolved]
  - Product use issue [Unknown]
  - Dystonia [Recovered/Resolved]
